FAERS Safety Report 7413794-8 (Version None)
Quarter: 2011Q2

REPORT INFORMATION
  Report Type: 
  Country: None (occurrence: None)
  Receive Date: 20110413
  Receipt Date: 20110406
  Transmission Date: 20111010
  Serious: Yes (Congenital Anomaly)
  Sender: FDA-Public Use
  Company Number: US-MERCK-1104USA00687B1

PATIENT
  Age: 0 Day
  Sex: Male

DRUGS (1)
  1. SINGULAIR [Suspect]
     Indication: ASTHMA
     Route: 064
     Dates: start: 20050701, end: 20081101

REACTIONS (2)
  - DRUG EXPOSURE DURING PREGNANCY [None]
  - UNIVENTRICULAR HEART [None]
